FAERS Safety Report 18020636 (Version 1)
Quarter: 2020Q3

REPORT INFORMATION
  Report Type: Spontaneous
  Country: FR (occurrence: FR)
  Receive Date: 20200714
  Receipt Date: 20200714
  Transmission Date: 20201103
  Serious: Yes (Hospitalization)
  Sender: FDA-Public Use
  Company Number: FR-PFIZER INC-2020265509

PATIENT
  Age: 52 Year
  Sex: Female

DRUGS (5)
  1. BISOPROLOL FUMARATE. [Concomitant]
     Active Substance: BISOPROLOL FUMARATE
     Dosage: 2.5 MG, 1X/DAY (2.5 MG 1X/D IF AT HIGH)
     Route: 048
  2. AVASTIN [Suspect]
     Active Substance: BEVACIZUMAB
     Indication: ADENOCARCINOMA OF COLON
     Dosage: UNK (1X/ 15D)
     Route: 041
     Dates: start: 20200211, end: 20200330
  3. FLUOROURACIL. [Suspect]
     Active Substance: FLUOROURACIL
     Indication: ADENOCARCINOMA OF COLON
     Dosage: UNK (1X/ 15D)
     Route: 042
     Dates: start: 20200211, end: 20200330
  4. PANTOPRAZOLE [Concomitant]
     Active Substance: PANTOPRAZOLE
     Dosage: 20 MG, 1X/DAY
     Route: 048
  5. IRINOTECAN HCL [Suspect]
     Active Substance: IRINOTECAN HYDROCHLORIDE
     Indication: ADENOCARCINOMA OF COLON
     Dosage: UNK (1X/ 15D)
     Route: 042
     Dates: start: 20200211, end: 20200330

REACTIONS (1)
  - Central nervous system vasculitis [Not Recovered/Not Resolved]

NARRATIVE: CASE EVENT DATE: 20200330
